FAERS Safety Report 19920349 (Version 4)
Quarter: 2021Q4

REPORT INFORMATION
  Report Type: Spontaneous
  Country: PL (occurrence: PL)
  Receive Date: 20211005
  Receipt Date: 20211028
  Transmission Date: 20220303
  Serious: Yes (Hospitalization, Other)
  Sender: FDA-Public Use
  Company Number: PL-002147023-NVSC2021PL105402

PATIENT
  Age: 79 Year
  Sex: Male
  Weight: 103.3 kg

DRUGS (15)
  1. METFORMIN [Suspect]
     Active Substance: METFORMIN HYDROCHLORIDE
     Indication: Product used for unknown indication
     Dosage: 500 MILLIGRAM, TID (1500 MILLIGRAM, QD (500 MG, TID))
     Route: 065
  2. GLICLAZIDE [Suspect]
     Active Substance: GLICLAZIDE
     Indication: Product used for unknown indication
     Dosage: 60 MILLIGRAM, AM (60 MG (IN THE MORNING))
     Route: 065
  3. TAMSULOSIN [Suspect]
     Active Substance: TAMSULOSIN
     Indication: Product used for unknown indication
     Dosage: 0.4 MILLIGRAM, AM (0.4 MG QD (IN THE MORNING))
     Route: 065
  4. ATORVASTATIN [Suspect]
     Active Substance: ATORVASTATIN
     Indication: Product used for unknown indication
     Dosage: 20 MILLIGRAM, PM (20 MG (IN THE EVENING))
     Route: 065
  5. FINASTERIDE [Suspect]
     Active Substance: FINASTERIDE
     Indication: Product used for unknown indication
     Dosage: 5 MILLIGRAM, AM (5 MG (IN THE MORNING))
     Route: 065
  6. PERINDOPRIL [Suspect]
     Active Substance: PERINDOPRIL
     Indication: Product used for unknown indication
     Dosage: 10 MILLIGRAM, PM (10 MG QD (IN THE EVENING))
     Route: 065
  7. LERCANIDIPINE [Suspect]
     Active Substance: LERCANIDIPINE
     Indication: Product used for unknown indication
     Dosage: 20 MILLIGRAM, AM (20 MG (IN THE MORNING))
     Route: 065
  8. TORSEMIDE [Suspect]
     Active Substance: TORSEMIDE
     Indication: Product used for unknown indication
     Dosage: 20 MILLIGRAM, AM (20 MG QD(IN THE MORNING))
     Route: 065
  9. FORMOTEROL [Suspect]
     Active Substance: FORMOTEROL
     Indication: Product used for unknown indication
     Dosage: 12 MICROGRAM, QD (12 UG, BID)
     Route: 055
  10. FORMOTEROL [Suspect]
     Active Substance: FORMOTEROL
     Dosage: 24 MICROGRAM, QD
     Route: 055
  11. ALLOPURINOL [Suspect]
     Active Substance: ALLOPURINOL
     Indication: Product used for unknown indication
     Dosage: 300 MILLIGRAM, AM (300 MG (IN THE MORNING))
     Route: 065
  12. TRIMETAZIDINE [Suspect]
     Active Substance: TRIMETAZIDINE
     Indication: Product used for unknown indication
     Dosage: 20 MILLIGRAM, BID (20 MILLIGRAM (20 MG (IN THE MORNING AND EVENING)))
     Route: 065
  13. EPLERENONE [Suspect]
     Active Substance: EPLERENONE
     Indication: Product used for unknown indication
     Dosage: 25 MILLIGRAM, AM (25 MG (IN THE MORNING))
     Route: 065
  14. ACENOCOUMAROL [Suspect]
     Active Substance: ACENOCOUMAROL
     Indication: Product used for unknown indication
     Dosage: 3 MILLIGRAM, QD (3 MG, QD)
     Route: 065
  15. BISOPROLOL [Suspect]
     Active Substance: BISOPROLOL
     Indication: Product used for unknown indication
     Dosage: 5 MILLIGRAM, QD (5 MG, QD (IN THE MORNING))
     Route: 065

REACTIONS (19)
  - Ejection fraction decreased [Unknown]
  - Cardiac failure chronic [Unknown]
  - Dyspnoea at rest [Unknown]
  - Coronary artery stenosis [Unknown]
  - Cardiac murmur [Unknown]
  - Pleural effusion [Unknown]
  - Rales [Unknown]
  - Inferior vena cava dilatation [Unknown]
  - Splenomegaly [Unknown]
  - Ventricular enlargement [Unknown]
  - Renal cyst [Unknown]
  - Oedema peripheral [Unknown]
  - Liver palpable [Unknown]
  - Hepatic vein dilatation [Unknown]
  - Atrial enlargement [Unknown]
  - Heart rate irregular [Unknown]
  - Stenosis [Unknown]
  - Cardiac failure [Unknown]
  - Breath sounds abnormal [Unknown]

NARRATIVE: CASE EVENT DATE: 20210101
